FAERS Safety Report 4588008-7 (Version None)
Quarter: 2005Q1

REPORT INFORMATION
  Report Type: 
  Country: None (occurrence: None)
  Receive Date: 20050215
  Receipt Date: 20030923
  Transmission Date: 20050727
  Serious: Yes (Death)
  Sender: FDA-Public Use
  Company Number: 173068

PATIENT
  Sex: Male

DRUGS (7)
  1. AVONEX [Suspect]
     Indication: MULTIPLE SCLEROSIS
     Dates: start: 19990701
  2. ASACOL [Concomitant]
  3. ZOLOFT [Concomitant]
  4. HYDROCHLOROTHIAZIDE [Concomitant]
  5. FLOMAX [Concomitant]
  6. IMURAN [Concomitant]
  7. BENTYL [Concomitant]

REACTIONS (5)
  - AFFECTIVE DISORDER [None]
  - COLITIS ULCERATIVE [None]
  - HYPERTENSION [None]
  - MYOCARDIAL INFARCTION [None]
  - MYOCARDIAL ISCHAEMIA [None]
